FAERS Safety Report 5494413-7 (Version None)
Quarter: 2007Q4

REPORT INFORMATION
  Report Type: 
  Country: None (occurrence: None)
  Receive Date: 20071022
  Receipt Date: 20071022
  Transmission Date: 20080405
  Serious: Yes (Hospitalization)
  Sender: FDA-Public Use
  Company Number: None

PATIENT
  Age: 38 Year
  Sex: Female
  Weight: 77 kg

DRUGS (1)
  1. FENTANYL [Suspect]
     Indication: PAIN MANAGEMENT
     Dosage: Q 72 HRS TRANSDERMAL
     Route: 062
     Dates: start: 20070621, end: 20070624

REACTIONS (4)
  - LETHARGY [None]
  - SOMNOLENCE [None]
  - UNRESPONSIVE TO STIMULI [None]
  - WRONG TECHNIQUE IN DRUG USAGE PROCESS [None]
